FAERS Safety Report 5329397-5 (Version None)
Quarter: 2007Q1

REPORT INFORMATION
  Report Type: 
  Country: None (occurrence: None)
  Receive Date: 20070223
  Receipt Date: 20060216
  Transmission Date: 20070707
  Serious: Yes (Hospitalization, Disabling, Other)
  Sender: FDA-Public Use
  Company Number: WAES 0602USA04546

PATIENT
  Age: 74 Year
  Sex: Male
  Weight: 47.1741 kg

DRUGS (2)
  1. ZOCOR [Suspect]
     Dosage: PO
     Route: 048
     Dates: start: 20060116, end: 20060206
  2. ACTOS [Concomitant]

REACTIONS (2)
  - ASTHENIA [None]
  - RHABDOMYOLYSIS [None]
